FAERS Safety Report 10189496 (Version 2)
Quarter: 2014Q2

REPORT INFORMATION
  Report Type: Report from Study
  Country: US (occurrence: US)
  Receive Date: 20140522
  Receipt Date: 20140607
  Transmission Date: 20141212
  Serious: Yes (Hospitalization)
  Sender: FDA-Public Use
  Company Number: PHEH2014US010138

PATIENT
  Sex: Female

DRUGS (1)
  1. TOBI [Suspect]
     Dosage: 300 MG, BID (300 MG / 5 ML)
     Route: 055

REACTIONS (5)
  - Pneumonia [Unknown]
  - Cough [Unknown]
  - Musculoskeletal pain [Unknown]
  - Back pain [Unknown]
  - Productive cough [Unknown]
